FAERS Safety Report 7500689-4 (Version None)
Quarter: 2011Q2

REPORT INFORMATION
  Report Type: 
  Country: None (occurrence: None)
  Receive Date: 20110517
  Receipt Date: 20110510
  Transmission Date: 20111010
  Serious: Yes (Death, Hospitalization)
  Sender: FDA-Public Use
  Company Number: 2010JP006519

PATIENT
  Age: 72 Year
  Sex: Female

DRUGS (11)
  1. PROGRAF [Suspect]
     Indication: MYASTHENIA GRAVIS
     Dosage: 3 MG, UID/QD,  OPHTHALMIC
     Route: 047
     Dates: start: 20050106, end: 20100903
  2. BONALON (ALENDRONATE SODIUM) [Concomitant]
  3. GASTER (FAMOTIDINE) ORODISPERSIBLE CR [Concomitant]
  4. OMEPRAZOLE [Concomitant]
  5. FERROMIA (FERROUS SODIUM CITRATE) [Concomitant]
  6. PREDNISOLONE [Concomitant]
  7. BASEN (VOGLIBOSE) [Concomitant]
  8. ONEALFA (ALFACALCIDOL) [Concomitant]
  9. AMARYL [Concomitant]
  10. MESTINON [Concomitant]
  11. RISEDRONATE SODIUM [Concomitant]

REACTIONS (4)
  - ILEUS [None]
  - LYMPHOMA [None]
  - FAECES DISCOLOURED [None]
  - ANAEMIA [None]
